FAERS Safety Report 5489360-0 (Version None)
Quarter: 2007Q4

REPORT INFORMATION
  Report Type: 
  Country: None (occurrence: None)
  Receive Date: 20071018
  Receipt Date: 20071009
  Transmission Date: 20080405
  Serious: Yes (Other)
  Sender: FDA-Public Use
  Company Number: PT-ELI_LILLY_AND_COMPANY-PT200710000031

PATIENT
  Sex: Male
  Weight: 70 kg

DRUGS (3)
  1. PEMETREXED [Suspect]
     Dosage: 910 UG, EVERY THREE WEEKS
     Route: 042
     Dates: start: 20070709, end: 20070820
  2. PARACETAMOL [Concomitant]
     Dosage: 362.5 MG, DAILY (1/D)
     Route: 048
     Dates: start: 20070511
  3. TRAMADOL HCL [Concomitant]
     Dosage: 362.50 MG, DAILY (1/D)
     Route: 048
     Dates: start: 20070511

REACTIONS (6)
  - ANXIETY [None]
  - MALAISE [None]
  - MUCOSAL INFLAMMATION [None]
  - NAUSEA [None]
  - PRESYNCOPE [None]
  - VOMITING [None]
